FAERS Safety Report 8420286-6 (Version None)
Quarter: 2012Q2

REPORT INFORMATION
  Report Type: 
  Country: None (occurrence: None)
  Receive Date: 20120607
  Receipt Date: 20120523
  Transmission Date: 20120825
  Serious: Yes (Other)
  Sender: FDA-Public Use
  Company Number: CHPA2012US011447

PATIENT
  Sex: Female

DRUGS (4)
  1. EXCEDRIN PM CAPLETS [Suspect]
     Indication: INSOMNIA
     Dosage: 1 DF, QHS
     Route: 048
     Dates: start: 20110101
  2. PRAVASTATIN [Concomitant]
     Indication: BLOOD CHOLESTEROL INCREASED
     Dosage: UNK
  3. TRILIPIX [Concomitant]
     Indication: BLOOD CHOLESTEROL INCREASED
     Dosage: UNK
  4. LISINOPRIL [Concomitant]
     Indication: HYPERTENSION
     Dosage: UNK

REACTIONS (8)
  - TOOTH ABSCESS [None]
  - DRY MOUTH [None]
  - ORAL DISCOMFORT [None]
  - ORAL MUCOSAL ERUPTION [None]
  - CHAPPED LIPS [None]
  - UNDERDOSE [None]
  - INCORRECT DRUG ADMINISTRATION DURATION [None]
  - ORAL MUCOSAL EXFOLIATION [None]
